FAERS Safety Report 7394710-4 (Version None)
Quarter: 2011Q2

REPORT INFORMATION
  Report Type: 
  Country: None (occurrence: None)
  Receive Date: 20110405
  Receipt Date: 20110323
  Transmission Date: 20111010
  Serious: Yes (Other)
  Sender: FDA-Public Use
  Company Number: PHHY2011MX24732

PATIENT
  Sex: Female

DRUGS (2)
  1. CO-DIOVAN [Suspect]
     Dosage: 320/25 MG, QD
     Dates: start: 20090301
  2. CO-DIOVAN [Suspect]
     Indication: HYPERTENSION
     Dosage: 160/12.5 MG, BID
     Route: 048

REACTIONS (3)
  - UMBILICAL HERNIA [None]
  - BACK PAIN [None]
  - ABDOMINAL PAIN UPPER [None]
